FAERS Safety Report 18571073 (Version 1)
Quarter: 2020Q4

REPORT INFORMATION
  Report Type: Spontaneous
  Country: US (occurrence: US)
  Receive Date: 20201202
  Receipt Date: 20201202
  Transmission Date: 20210114
  Serious: No
  Sender: FDA-Public Use
  Company Number: US-NOVEN PHARMACEUTICALS, INC.-2020US006211

PATIENT
  Sex: Female
  Weight: 54.42 kg

DRUGS (4)
  1. MINIVELLE [Suspect]
     Active Substance: ESTRADIOL
     Dosage: 0.025 MG/ DAY, CHANGED EVERY 3-4 DAYS
     Route: 062
     Dates: start: 2010, end: 2019
  2. MINIVELLE [Suspect]
     Active Substance: ESTRADIOL
     Indication: MENOPAUSAL SYMPTOMS
     Dosage: 0.025 MG/ DAY, CHANGED EVERY 3-4 DAYS
     Route: 062
     Dates: start: 2020
  3. PROGESTERONE. [Concomitant]
     Active Substance: PROGESTERONE
     Indication: PRODUCT USED FOR UNKNOWN INDICATION
     Dosage: UNK
     Route: 048
  4. MINIVELLE [Suspect]
     Active Substance: ESTRADIOL
     Dosage: 0.05 MG/ DAY, CHANGED EVERY 3-4 DAYS
     Route: 062
     Dates: end: 2020

REACTIONS (6)
  - Product quality issue [Not Recovered/Not Resolved]
  - Drug ineffective [Recovered/Resolved]
  - Application site pain [Recovered/Resolved]
  - Application site erythema [Recovered/Resolved]
  - Incorrect dose administered [Not Recovered/Not Resolved]
  - Product adhesion issue [Not Recovered/Not Resolved]

NARRATIVE: CASE EVENT DATE: 2019
